FAERS Safety Report 12937004 (Version 1)
Quarter: 2016Q4

REPORT INFORMATION
  Report Type: Report from Study
  Country: IT (occurrence: IT)
  Receive Date: 20161114
  Receipt Date: 20161114
  Transmission Date: 20170207
  Serious: Yes (Hospitalization, Other)
  Sender: FDA-Public Use
  Company Number: IT-BRISTOL-MYERS SQUIBB COMPANY-BMS-2016-094207

PATIENT
  Age: 65 Year
  Sex: Female

DRUGS (1)
  1. NIVOLUMAB [Suspect]
     Active Substance: NIVOLUMAB
     Indication: NON-SMALL CELL LUNG CANCER
     Dosage: 3 MG/KG, Q2WK
     Route: 042

REACTIONS (17)
  - Anaemia [Unknown]
  - Escherichia urinary tract infection [Unknown]
  - Spinal pain [Unknown]
  - Haemorrhage [Unknown]
  - Visual field defect [Unknown]
  - Thrombosis [Unknown]
  - Hemianopia [Unknown]
  - Cough [Unknown]
  - Diarrhoea [Recovered/Resolved]
  - Swelling [Unknown]
  - Disorientation [Unknown]
  - Nausea [Recovered/Resolved]
  - Oedema peripheral [Unknown]
  - Pyrexia [Unknown]
  - Vomiting [Recovered/Resolved]
  - Dyspnoea [Unknown]
  - Sputum retention [Unknown]

NARRATIVE: CASE EVENT DATE: 20160302
